FAERS Safety Report 23535865 (Version 2)
Quarter: 2024Q1

REPORT INFORMATION
  Report Type: Report from Study
  Country: PE (occurrence: PE)
  Receive Date: 20240219
  Receipt Date: 20240301
  Transmission Date: 20240409
  Serious: Yes (Hospitalization, Other)
  Sender: FDA-Public Use
  Company Number: PE-BAYER-2024A020316

PATIENT
  Age: 88 Year
  Sex: Male

DRUGS (2)
  1. RIVAROXABAN [Suspect]
     Active Substance: RIVAROXABAN
     Indication: Atrial fibrillation
     Dosage: 15 MG, QD
     Route: 048
     Dates: start: 20200101
  2. SODIUM CHLORIDE [Concomitant]
     Active Substance: SODIUM CHLORIDE

REACTIONS (13)
  - Apparent death [Unknown]
  - Pancreatitis [Not Recovered/Not Resolved]
  - Hypotension [Not Recovered/Not Resolved]
  - Amylase decreased [Not Recovered/Not Resolved]
  - Decreased appetite [Unknown]
  - Neoplasm malignant [Not Recovered/Not Resolved]
  - Cardiac pacemaker insertion [Unknown]
  - Hypotension [Unknown]
  - Weight decreased [Not Recovered/Not Resolved]
  - Ligament rupture [Not Recovered/Not Resolved]
  - Ligament sprain [Not Recovered/Not Resolved]
  - Underdose [Unknown]
  - Epistaxis [Not Recovered/Not Resolved]

NARRATIVE: CASE EVENT DATE: 20240131
